FAERS Safety Report 7729142-X (Version None)
Quarter: 2011Q3

REPORT INFORMATION
  Report Type: 
  Country: None (occurrence: None)
  Receive Date: 20110906
  Receipt Date: 20110901
  Transmission Date: 20111222
  Serious: Yes (Hospitalization, Other)
  Sender: FDA-Public Use
  Company Number: US-PFIZER INC-2011128668

PATIENT
  Sex: Female

DRUGS (7)
  1. CHANTIX [Suspect]
     Indication: SMOKING CESSATION THERAPY
     Dosage: STARTER PACK
     Dates: start: 20070401, end: 20070601
  2. ALBUTEROL SULFATE AUTOHALER [Concomitant]
     Indication: ASTHMA
     Dosage: UNK
     Dates: start: 19940101
  3. CYMBALTA [Concomitant]
     Indication: DEPRESSION
  4. DIAZEPAM [Concomitant]
     Indication: ANXIETY
     Dosage: UNK
     Dates: start: 20020101
  5. CYMBALTA [Concomitant]
     Indication: ANXIETY
     Dosage: UNK
     Dates: start: 20020101, end: 20110101
  6. OXYCODONE [Concomitant]
     Indication: NECK PAIN
  7. OXYCODONE [Concomitant]
     Indication: BACK PAIN
     Dosage: UNK
     Dates: start: 20020101, end: 20090101

REACTIONS (4)
  - DEPRESSION [None]
  - SUICIDE ATTEMPT [None]
  - SUICIDAL IDEATION [None]
  - ANXIETY [None]
